FAERS Safety Report 6846977-6 (Version None)
Quarter: 2010Q3

REPORT INFORMATION
  Report Type: 
  Country: None (occurrence: None)
  Receive Date: 20100713
  Receipt Date: 20100628
  Transmission Date: 20110219
  Serious: Yes (Other)
  Sender: FDA-Public Use
  Company Number: JP-1182283

PATIENT
  Age: 78 Year
  Sex: Female

DRUGS (1)
  1. TRAVATAN Z [Suspect]
     Indication: GLAUCOMA
     Dosage: GTT QD OU OPHTHALMIC
     Route: 047
     Dates: start: 20100531, end: 20100602

REACTIONS (2)
  - OCULAR HYPERAEMIA [None]
  - UVEITIS [None]
